FAERS Safety Report 5400276-8 (Version None)
Quarter: 2007Q3

REPORT INFORMATION
  Report Type: 
  Country: None (occurrence: None)
  Receive Date: 20070730
  Receipt Date: 20070713
  Transmission Date: 20080115
  Serious: Yes (Other)
  Sender: FDA-Public Use
  Company Number: CA-ROCHE-507411

PATIENT
  Age: 65 Year
  Sex: Male

DRUGS (6)
  1. FUZEON [Suspect]
     Dosage: FORM REPORTED: VIAL.
     Route: 058
     Dates: start: 20040506
  2. ZIAGEN [Concomitant]
     Route: 048
  3. KALETRA [Concomitant]
     Route: 048
  4. TMC 125 [Concomitant]
     Route: 048
     Dates: start: 20050101
  5. VASOTEC [Concomitant]
     Route: 048
  6. LIPITOR [Concomitant]
     Dosage: THE DRUG WAS TAKEN AT BED TIME.
     Route: 048

REACTIONS (9)
  - COLITIS [None]
  - INJECTION SITE BRUISING [None]
  - INJECTION SITE ERYTHEMA [None]
  - INJECTION SITE HAEMORRHAGE [None]
  - INJECTION SITE INDURATION [None]
  - INJECTION SITE MASS [None]
  - INJECTION SITE PAIN [None]
  - INJECTION SITE URTICARIA [None]
  - PROSTATE CANCER [None]
